FAERS Safety Report 4913174-0 (Version None)
Quarter: 2006Q1

REPORT INFORMATION
  Report Type: 
  Country: None (occurrence: None)
  Receive Date: 20060215
  Receipt Date: 20050930
  Transmission Date: 20060701
  Serious: Yes (Hospitalization)
  Sender: FDA-Public Use
  Company Number: US-MERCK-0510USA02062

PATIENT
  Age: 51 Year
  Sex: Male
  Weight: 82 kg

DRUGS (9)
  1. VIOXX [Suspect]
     Indication: ARTHRALGIA
     Route: 048
     Dates: start: 20030514, end: 20040201
  2. VIOXX [Suspect]
     Indication: PAIN
     Route: 048
     Dates: start: 20030514, end: 20040201
  3. LORAZEPAM [Concomitant]
     Indication: ANXIETY
     Route: 065
     Dates: start: 20020109, end: 20031223
  4. CELEXA [Concomitant]
     Indication: DEPRESSION
     Route: 065
     Dates: start: 20020906
  5. ACCUPRIL [Concomitant]
     Indication: MYOCARDIAL INFARCTION
     Route: 065
     Dates: start: 20020109, end: 20031218
  6. DILTIAZEM HYDROCHLORIDE [Concomitant]
     Route: 065
  7. ALOCRIL [Concomitant]
     Route: 065
  8. ALLEGRA [Concomitant]
     Route: 065
  9. ASTELIN [Concomitant]
     Route: 065

REACTIONS (8)
  - ADVERSE EVENT [None]
  - ANXIETY [None]
  - BLOOD CHOLESTEROL ABNORMAL [None]
  - CHEST PAIN [None]
  - CORONARY ARTERY DISEASE [None]
  - DEPRESSION [None]
  - HYPERTENSION [None]
  - MYOCARDIAL INFARCTION [None]
